FAERS Safety Report 5097856-9 (Version None)
Quarter: 2006Q3

REPORT INFORMATION
  Report Type: 
  Country: None (occurrence: None)
  Receive Date: 20060905
  Receipt Date: 20060821
  Transmission Date: 20061208
  Serious: Yes (Hospitalization)
  Sender: FDA-Public Use
  Company Number: HQWYE848122AUG06

PATIENT
  Age: 75 Year
  Sex: Female

DRUGS (8)
  1. VENLAFAXINE HCL [Suspect]
     Indication: DEPRESSIVE SYMPTOM
     Dosage: SEE IMAGE
  2. VENLAFAXINE HCL [Suspect]
     Indication: DEPRESSIVE SYMPTOM
     Dosage: SEE IMAGE
  3. VENLAFAXINE HCL [Suspect]
     Indication: DEPRESSIVE SYMPTOM
     Dosage: SEE IMAGE
  4. ASPIRIN [Suspect]
  5. HYDROCHLOROTHIAZIDE [Suspect]
  6. LISINOPRIL [Suspect]
  7. AMLODIPINE [Concomitant]
  8. PRAVASTATIN [Concomitant]

REACTIONS (7)
  - BLOOD CHLORIDE DECREASED [None]
  - BLOOD OSMOLARITY DECREASED [None]
  - DRUG INEFFECTIVE [None]
  - HYPONATRAEMIA [None]
  - INCORRECT DRUG ADMINISTRATION DURATION [None]
  - MEDICATION ERROR [None]
  - PSYCHOTIC DISORDER [None]
